FAERS Safety Report 8501968-4 (Version None)
Quarter: 2012Q3

REPORT INFORMATION
  Report Type: 
  Country: None (occurrence: None)
  Receive Date: 20120711
  Receipt Date: 20120710
  Transmission Date: 20120928
  Serious: Yes (Hospitalization)
  Sender: FDA-Public Use
  Company Number: PHFR2011GB04607

PATIENT
  Sex: Female

DRUGS (5)
  1. HYOSCINE BUTYLBROMIDE [Concomitant]
     Indication: STICKLER'S SYNDROME
     Dosage: 900 UG DAILY
     Route: 048
  2. VALPROIC ACID [Concomitant]
     Indication: SCHIZOPHRENIA, PARANOID TYPE
     Dosage: 1.5 G DAILY
     Route: 048
  3. CLOZARIL [Suspect]
     Indication: SCHIZOPHRENIA, PARANOID TYPE
     Dosage: 600 MG/DAY
     Route: 048
     Dates: start: 20081003
  4. CLOZARIL [Suspect]
     Dosage: 500 MG/DAY
     Route: 048
  5. BISOPROLOL FUMARATE [Concomitant]
     Indication: HYPERTENSION
     Dosage: 3.75 MG DAILY
     Route: 048

REACTIONS (1)
  - PNEUMOTHORAX [None]
